FAERS Safety Report 17569191 (Version 2)
Quarter: 2020Q2

REPORT INFORMATION
  Report Type: Spontaneous
  Country: IE (occurrence: IE)
  Receive Date: 20200322
  Receipt Date: 20200429
  Transmission Date: 20200713
  Serious: Yes (Other)
  Sender: FDA-Public Use
  Company Number: IE-009507513-2003IRL006644

PATIENT
  Age: 44 Year
  Sex: Male
  Weight: 83 kg

DRUGS (3)
  1. VITAMIN D (UNSPECIFIED) [Concomitant]
     Active Substance: VITAMIN D NOS
  2. REGAINE [Concomitant]
     Active Substance: MINOXIDIL
     Dosage: 50 MILLIGRAM PER MILLILITRE
  3. FINASTERIDE. [Suspect]
     Active Substance: FINASTERIDE
     Indication: ALOPECIA
     Dosage: 1 MILLIGRAM DAILY (FORMULATION: TABLET)
     Dates: start: 2014, end: 20200304

REACTIONS (8)
  - Peyronie^s disease [Not Recovered/Not Resolved]
  - Penis disorder [Not Recovered/Not Resolved]
  - Painful ejaculation [Not Recovered/Not Resolved]
  - Gynaecomastia [Recovered/Resolved]
  - Painful erection [Not Recovered/Not Resolved]
  - Erectile dysfunction [Not Recovered/Not Resolved]
  - Penile size reduced [Not Recovered/Not Resolved]
  - Penile curvature [Not Recovered/Not Resolved]

NARRATIVE: CASE EVENT DATE: 20150518
